FAERS Safety Report 7632697-7 (Version None)
Quarter: 2011Q3

REPORT INFORMATION
  Report Type: 
  Country: None (occurrence: None)
  Receive Date: 20110725
  Receipt Date: 20101202
  Transmission Date: 20111222
  Serious: No
  Sender: FDA-Public Use
  Company Number: US-BRISTOL-MYERS SQUIBB COMPANY-15419534

PATIENT
  Age: 76 Year
  Sex: Male
  Weight: 100 kg

DRUGS (2)
  1. COUMADIN [Suspect]
     Indication: PULMONARY THROMBOSIS
     Dosage: WITH 1 DAY AT 6.5MG
     Dates: start: 20101020
  2. ALLOPURINOL [Concomitant]
     Route: 047

REACTIONS (1)
  - INTERNATIONAL NORMALISED RATIO FLUCTUATION [None]
